FAERS Safety Report 5375708-4 (Version None)
Quarter: 2007Q2

REPORT INFORMATION
  Report Type: 
  Country: None (occurrence: None)
  Receive Date: 20070628
  Receipt Date: 20070621
  Transmission Date: 20071010
  Serious: Yes (Other)
  Sender: FDA-Public Use
  Company Number: 2007-02980

PATIENT
  Age: 25 Year
  Sex: Female

DRUGS (3)
  1. MONODOX [Suspect]
     Indication: ACNE
     Dosage: 100 MG, DAILY X 18 DAYS, ORAL
     Route: 048
     Dates: start: 19970101, end: 19970101
  2. TRETINOIN (TRETINOIN) CREAM [Concomitant]
  3. ERYTHROMYCIN GEL [Concomitant]

REACTIONS (1)
  - STEVENS-JOHNSON SYNDROME [None]
